FAERS Safety Report 19674254 (Version 2)
Quarter: 2021Q4

REPORT INFORMATION
  Report Type: Spontaneous
  Country: US (occurrence: US)
  Receive Date: 20210809
  Receipt Date: 20211101
  Transmission Date: 20220303
  Serious: No
  Sender: FDA-Public Use
  Company Number: US-BLUEPRINT MEDICINES CORPORATION-SP-US-2021-001143

PATIENT
  Age: 69 Year
  Sex: Male

DRUGS (4)
  1. AYVAKIT [Suspect]
     Active Substance: AVAPRITINIB
     Indication: Gastrointestinal stromal tumour
     Dosage: 100MG ONCE DAILY FOR WEEK ONE, 200MG ONCE DAILY FOR WEEK 2, 300MG ONCE DAILY FOR WEEK 3
     Route: 048
     Dates: start: 20210701
  2. AYVAKIT [Suspect]
     Active Substance: AVAPRITINIB
     Dosage: 100MG ONCE DAILY FOR WEEK ONE, 200MG ONCE DAILY FOR WEEK 2, 300MG ONCE DAILY FOR WEEK 3
     Route: 048
  3. AYVAKIT [Suspect]
     Active Substance: AVAPRITINIB
     Dosage: 100MG ONCE DAILY FOR WEEK ONE, 200MG ONCE DAILY FOR WEEK 2, 300MG ONCE DAILY FOR WEEK 3
     Route: 048
  4. IRON [Concomitant]
     Active Substance: IRON
     Indication: Product used for unknown indication
     Route: 042

REACTIONS (4)
  - Fluid retention [Unknown]
  - Joint swelling [Unknown]
  - Periorbital swelling [Unknown]
  - Off label use [Unknown]
